FAERS Safety Report 7298698-6 (Version None)
Quarter: 2011Q1

REPORT INFORMATION
  Report Type: 
  Country: None (occurrence: None)
  Receive Date: 20110217
  Receipt Date: 20110211
  Transmission Date: 20110831
  Serious: Yes (Hospitalization)
  Sender: FDA-Public Use
  Company Number: NL-ELI_LILLY_AND_COMPANY-NL201102001317

PATIENT
  Sex: Male

DRUGS (9)
  1. PAROXETINE [Concomitant]
     Dosage: 10 MG, DAILY (1/D)
  2. DOXAZOSINE MERCK [Concomitant]
     Dosage: 4 MG, DAILY (1/D)
  3. EZETROL [Concomitant]
     Dosage: 10 MG, DAILY (1/D)
  4. ACENOCOUMAROL [Concomitant]
  5. LOSARTAN [Concomitant]
     Dosage: 100 MG, DAILY (1/D)
  6. EXENATIDE [Suspect]
     Indication: TYPE 2 DIABETES MELLITUS
     Dosage: 5 UG, 2/D
     Dates: start: 20110120, end: 20110202
  7. METFORMIN HCL [Concomitant]
     Dosage: 1000 MG, 2/D
  8. METOPROLOL [Concomitant]
     Dosage: 100 MG, DAILY (1/D)
  9. LEVITRA [Concomitant]
     Dosage: UNK, AS NEEDED

REACTIONS (1)
  - SEPSIS [None]
